FAERS Safety Report 12964566 (Version 2)
Quarter: 2016Q4

REPORT INFORMATION
  Report Type: Spontaneous
  Country: US (occurrence: US)
  Receive Date: 20161122
  Receipt Date: 20161209
  Transmission Date: 20170207
  Serious: Yes (Other)
  Sender: FDA-Public Use
  Company Number: US-PFIZER INC-2016537875

PATIENT
  Age: 35 Year
  Sex: Female
  Weight: 113 kg

DRUGS (4)
  1. SERTRALINE HCL [Interacting]
     Active Substance: SERTRALINE HYDROCHLORIDE
     Indication: DEPRESSION
  2. XANAX [Concomitant]
     Active Substance: ALPRAZOLAM
     Indication: ANXIETY
     Dosage: 2 MG, 3X/DAY
  3. SERTRALINE HCL [Suspect]
     Active Substance: SERTRALINE HYDROCHLORIDE
     Indication: IMPULSE-CONTROL DISORDER
     Dosage: 50 MG, 1X/DAY, IN MORNING
     Route: 048
     Dates: start: 20160930, end: 20161114
  4. CLONIDINE. [Concomitant]
     Active Substance: CLONIDINE
     Indication: BLOOD PRESSURE MEASUREMENT
     Dosage: 0.2 MG, 3X/DAY, MORNING, MID-DAY, AND BEDTIME
     Dates: start: 2007

REACTIONS (26)
  - Withdrawal syndrome [Unknown]
  - Depression [Recovering/Resolving]
  - Headache [Recovering/Resolving]
  - Muscle twitching [Unknown]
  - Drug interaction [Unknown]
  - Psychopathic personality [Unknown]
  - Lupus-like syndrome [Not Recovered/Not Resolved]
  - Obsessive-compulsive disorder [Unknown]
  - Condition aggravated [Unknown]
  - Rash [Unknown]
  - Influenza like illness [Unknown]
  - Dementia [Unknown]
  - Joint stiffness [Unknown]
  - Dizziness [Not Recovered/Not Resolved]
  - Weight increased [Unknown]
  - Confusional state [Not Recovered/Not Resolved]
  - Gait disturbance [Unknown]
  - Fatigue [Recovering/Resolving]
  - Anxiety [Recovering/Resolving]
  - Cognitive disorder [Unknown]
  - Hypoaesthesia [Unknown]
  - Disturbance in attention [Unknown]
  - Blood pressure increased [Recovering/Resolving]
  - Muscle spasms [Recovering/Resolving]
  - Pyrexia [Unknown]
  - Memory impairment [Unknown]

NARRATIVE: CASE EVENT DATE: 2016
